FAERS Safety Report 11119496 (Version 1)
Quarter: 2015Q2

REPORT INFORMATION
  Report Type: Spontaneous
  Country: GB (occurrence: GB)
  Receive Date: 20150518
  Receipt Date: 20150518
  Transmission Date: 20150821
  Serious: Yes (Other)
  Sender: FDA-Public Use
  Company Number: GB-TEVA-562609ACC

PATIENT
  Age: 64 Year
  Sex: Male
  Weight: 66.22 kg

DRUGS (6)
  1. SIMVASTATIN. [Concomitant]
     Active Substance: SIMVASTATIN
  2. AMITRIPTYLINE HYDROCHLORIDE. [Concomitant]
     Active Substance: AMITRIPTYLINE HYDROCHLORIDE
  3. FINASTERIDE. [Concomitant]
     Active Substance: FINASTERIDE
  4. LACTULOSE. [Suspect]
     Active Substance: LACTULOSE
     Indication: CONSTIPATION
     Dosage: 2 X 5ML SPOONFULLS TWICE A DAY.
     Route: 048
     Dates: start: 20150501, end: 20150502
  5. LAXIDO [Concomitant]
     Active Substance: POLYETHYLENE GLYCOL 3350\POTASSIUM CHLORIDE\SODIUM BICARBONATE\SODIUM CHLORIDE
  6. TAMSULOSIN [Concomitant]
     Active Substance: TAMSULOSIN

REACTIONS (8)
  - Vision blurred [Recovered/Resolved]
  - Dizziness [Recovered/Resolved]
  - Tinnitus [Recovered/Resolved]
  - Feeling hot [Recovered/Resolved]
  - Headache [Recovered/Resolved]
  - Nausea [Recovered/Resolved]
  - Pyrexia [Recovered/Resolved]
  - Cold sweat [Recovered/Resolved]

NARRATIVE: CASE EVENT DATE: 20150503
